FAERS Safety Report 24781007 (Version 1)
Quarter: 2024Q4

REPORT INFORMATION
  Report Type: Spontaneous
  Country: US (occurrence: US)
  Receive Date: 20241227
  Receipt Date: 20241227
  Transmission Date: 20250114
  Serious: No
  Sender: BIOVITRUM
  Company Number: US-BIOVITRUM-2024-US-016423

PATIENT
  Age: 36 Year
  Sex: Female

DRUGS (9)
  1. ANAKINRA [Suspect]
     Active Substance: ANAKINRA
     Indication: Rheumatoid arthritis
  2. ANAKINRA [Suspect]
     Active Substance: ANAKINRA
     Indication: Still^s disease
  3. ANAKINRA [Suspect]
     Active Substance: ANAKINRA
     Indication: Pulmonary arterial hypertension
  4. TOCILIZUMAB [Suspect]
     Active Substance: TOCILIZUMAB
     Indication: Rheumatoid arthritis
  5. TOCILIZUMAB [Suspect]
     Active Substance: TOCILIZUMAB
     Indication: Still^s disease
  6. TOCILIZUMAB [Suspect]
     Active Substance: TOCILIZUMAB
     Indication: Pulmonary arterial hypertension
  7. ETANERCEPT [Suspect]
     Active Substance: ETANERCEPT
     Indication: Rheumatoid arthritis
  8. ETANERCEPT [Suspect]
     Active Substance: ETANERCEPT
     Indication: Still^s disease
  9. ETANERCEPT [Suspect]
     Active Substance: ETANERCEPT
     Indication: Pulmonary arterial hypertension

REACTIONS (2)
  - Pyrexia [Unknown]
  - Drug ineffective [Unknown]
